FAERS Safety Report 7429411-7 (Version None)
Quarter: 2011Q2

REPORT INFORMATION
  Report Type: 
  Country: None (occurrence: None)
  Receive Date: 20110414
  Receipt Date: 20110331
  Transmission Date: 20111010
  Serious: Yes (Other)
  Sender: FDA-Public Use
  Company Number: 030558

PATIENT
  Sex: Female
  Weight: 50.3 kg

DRUGS (1)
  1. CIMZIA [Suspect]
     Indication: CROHN'S DISEASE
     Dosage: 400 MG 1X/3 WEEKS SUBCUTANEOUS
     Route: 058
     Dates: start: 20091008, end: 20110305

REACTIONS (11)
  - NASOPHARYNGITIS [None]
  - ABDOMINAL PAIN [None]
  - HAEMORRHAGE [None]
  - OROPHARYNGEAL PAIN [None]
  - RASH [None]
  - HEADACHE [None]
  - OFF LABEL USE [None]
  - FATIGUE [None]
  - SOMNOLENCE [None]
  - INFECTION [None]
  - COUGH [None]
